FAERS Safety Report 5788660-4 (Version None)
Quarter: 2008Q2

REPORT INFORMATION
  Report Type: 
  Country: None (occurrence: None)
  Receive Date: 20080624
  Receipt Date: 20080618
  Transmission Date: 20081010
  Serious: Yes (Death)
  Sender: FDA-Public Use
  Company Number: MSTR-NO-0806S-0030

PATIENT
  Age: 67 Year
  Sex: Female
  Weight: 37.9 kg

DRUGS (1)
  1. METASTRON [Suspect]
     Indication: METASTATIC PAIN
     Dosage: 2.1 ML, SINGLE DOSE, I.V.
     Route: 042
     Dates: start: 20080314, end: 20080314

REACTIONS (3)
  - COLON CANCER [None]
  - CONDITION AGGRAVATED [None]
  - METASTATIC PAIN [None]
